FAERS Safety Report 5862062-4 (Version None)
Quarter: 2008Q3

REPORT INFORMATION
  Report Type: 
  Country: None (occurrence: None)
  Receive Date: 20080827
  Receipt Date: 20080827
  Transmission Date: 20090109
  Serious: Yes (Death)
  Sender: FDA-Public Use
  Company Number: None

PATIENT
  Sex: Male
  Weight: 88.9 kg

DRUGS (1)
  1. SORAFENIB [Suspect]
     Indication: PROSTATE CANCER
     Dosage: 200 MG BID PO
     Route: 048
     Dates: end: 20080608

REACTIONS (1)
  - DEATH [None]
